FAERS Safety Report 22895190 (Version 2)
Quarter: 2023Q4

REPORT INFORMATION
  Report Type: Report from Study
  Country: CO (occurrence: CO)
  Receive Date: 20230901
  Receipt Date: 20231129
  Transmission Date: 20240110
  Serious: Yes (Death, Hospitalization, Other)
  Sender: FDA-Public Use
  Company Number: CO-ABBVIE-5390977

PATIENT
  Age: 27 Year
  Sex: Male
  Weight: 44 kg

DRUGS (1)
  1. VENCLEXTA [Suspect]
     Active Substance: VENETOCLAX
     Indication: Acute myeloid leukaemia
     Dosage: FORM STRENGTH: 100 MG
     Route: 048
     Dates: start: 20221212, end: 20230829

REACTIONS (9)
  - Post procedural complication [Fatal]
  - Wound haemorrhage [Recovering/Resolving]
  - Immunodeficiency [Recovering/Resolving]
  - Tooth injury [Unknown]
  - Platelet count decreased [Recovering/Resolving]
  - Platelet count decreased [Recovered/Resolved]
  - Allergic transfusion reaction [Recovered/Resolved]
  - Red blood cell count decreased [Recovering/Resolving]
  - Bone marrow transplant [Unknown]

NARRATIVE: CASE EVENT DATE: 20230801
